FAERS Safety Report 5072299-2 (Version None)
Quarter: 2006Q3

REPORT INFORMATION
  Report Type: 
  Country: None (occurrence: None)
  Receive Date: 20060714
  Receipt Date: 20060403
  Transmission Date: 20061208
  Serious: No
  Sender: FDA-Public Use
  Company Number: 06P-163-0329711-00

PATIENT

DRUGS (1)
  1. ULTANE [Suspect]
     Indication: ANAESTHESIA
     Dates: start: 20060403, end: 20060403

REACTIONS (2)
  - ANAESTHETIC COMPLICATION [None]
  - DRUG INEFFECTIVE [None]
